FAERS Safety Report 8904674 (Version 9)
Quarter: 2016Q3

REPORT INFORMATION
  Report Type: Spontaneous
  Country: US (occurrence: US)
  Receive Date: 20121112
  Receipt Date: 20160804
  Transmission Date: 20161109
  Serious: Yes (Hospitalization, Disabling, Other)
  Sender: FDA-Public Use
  Company Number: US-009507513-1211USA004405

PATIENT
  Sex: Female
  Weight: 89.8 kg

DRUGS (3)
  1. FOSAMAX [Suspect]
     Active Substance: ALENDRONATE SODIUM
     Indication: OSTEOPOROSIS
     Dosage: 70 MG, UNK
     Route: 048
     Dates: start: 2005, end: 2011
  2. FOSAMAX [Suspect]
     Active Substance: ALENDRONATE SODIUM
     Indication: OSTEOPOROSIS
     Dosage: 70 MG, QW
     Route: 048
  3. ALENDRONATE SODIUM. [Suspect]
     Active Substance: ALENDRONATE SODIUM
     Indication: OSTEOPOROSIS
     Dosage: 70 MG, QW
     Route: 048

REACTIONS (81)
  - Exploratory operation [Unknown]
  - Facetectomy [Unknown]
  - Femur fracture [Not Recovered/Not Resolved]
  - Fall [Unknown]
  - Back disorder [Unknown]
  - Angiopathy [Unknown]
  - Meniscus injury [Unknown]
  - Osteopenia [Unknown]
  - Arthritis [Unknown]
  - Sciatica [Unknown]
  - Neuropathy peripheral [Unknown]
  - Bundle branch block right [Unknown]
  - Medical device removal [Unknown]
  - Spinal fusion surgery [Unknown]
  - Spinal laminectomy [Unknown]
  - Deep vein thrombosis [Unknown]
  - Medical device removal [Unknown]
  - Deep vein thrombosis [Unknown]
  - Exostosis [Unknown]
  - Impaired healing [Unknown]
  - Elbow operation [Unknown]
  - Hyperglycaemia [Unknown]
  - Open reduction of fracture [Not Recovered/Not Resolved]
  - Medical device removal [Unknown]
  - Spinal fusion surgery [Unknown]
  - Depression [Not Recovered/Not Resolved]
  - Rectal perforation [Unknown]
  - Fall [Unknown]
  - Vertebral foraminal stenosis [Unknown]
  - Bronchitis [Recovering/Resolving]
  - Hypertension [Unknown]
  - Intervertebral disc protrusion [Unknown]
  - Osteopenia [Unknown]
  - Leukocytosis [Unknown]
  - Muscle spasms [Unknown]
  - Spinal laminectomy [Unknown]
  - Spinal fusion surgery [Unknown]
  - Internal fixation of fracture [Recovering/Resolving]
  - Spinal corpectomy [Unknown]
  - Spinal fusion surgery [Unknown]
  - Surgery [Unknown]
  - Respiratory failure [Unknown]
  - Peripheral venous disease [Not Recovered/Not Resolved]
  - Radiculopathy [Unknown]
  - Pleural thickening [Unknown]
  - Spinal laminectomy [Unknown]
  - Sensory loss [Unknown]
  - Spinal fusion surgery [Unknown]
  - Spinal corpectomy [Unknown]
  - Intervertebral disc degeneration [Not Recovered/Not Resolved]
  - Asthenia [Unknown]
  - Spinal column injury [Unknown]
  - Postoperative ileus [Recovered/Resolved]
  - Asthenia [Unknown]
  - Foraminotomy [Unknown]
  - Spinal laminectomy [Unknown]
  - Pubis fracture [Recovered/Resolved]
  - Emphysema [Unknown]
  - Anaemia postoperative [Unknown]
  - Spinal laminectomy [Unknown]
  - Medical device removal [Recovering/Resolving]
  - Spinal decompression [Unknown]
  - Sepsis [Unknown]
  - Compression fracture [Unknown]
  - Haematoma [Unknown]
  - Pubis fracture [Recovered/Resolved]
  - Rib fracture [Recovering/Resolving]
  - Limb injury [Unknown]
  - Fall [Unknown]
  - Chronic obstructive pulmonary disease [Not Recovered/Not Resolved]
  - Sleep apnoea syndrome [Unknown]
  - Back pain [Not Recovered/Not Resolved]
  - Spinal flattening [Unknown]
  - Foraminotomy [Unknown]
  - Cervical spinal stenosis [Unknown]
  - Medical device removal [Unknown]
  - Renal failure [Unknown]
  - Calcium deficiency [Unknown]
  - Atelectasis [Unknown]
  - Pyrexia [Unknown]
  - Hernia repair [Unknown]

NARRATIVE: CASE EVENT DATE: 2004
